FAERS Safety Report 14422670 (Version 6)
Quarter: 2018Q2

REPORT INFORMATION
  Report Type: Spontaneous
  Country: DE (occurrence: DE)
  Receive Date: 20180123
  Receipt Date: 20180403
  Transmission Date: 20180711
  Serious: Yes (Hospitalization)
  Sender: FDA-Public Use
  Company Number: DE-ROCHE-2058664

PATIENT
  Sex: Female

DRUGS (7)
  1. DOXORUBICIN [Suspect]
     Active Substance: DOXORUBICIN
     Indication: B-CELL LYMPHOMA
     Dosage: DATE LAST CYCLE OF DOXORUBICIN STARTED PRIOR TO SAE: 04/JAN/2018
     Route: 042
     Dates: start: 20171221
  2. PEGFILGRASTIM [Suspect]
     Active Substance: PEGFILGRASTIM
     Route: 058
     Dates: start: 20180106
  3. CYCLOPHOSPHAMIDE. [Suspect]
     Active Substance: CYCLOPHOSPHAMIDE
     Indication: B-CELL LYMPHOMA
     Dosage: DATE LAST CYCLE OF CYCLOPHOSPHAMIDE STARTED PRIOR TO SAE: 04/JAN/2018
     Route: 042
     Dates: start: 20171221
  4. VINCRISTINE [Suspect]
     Active Substance: VINCRISTINE
     Indication: B-CELL LYMPHOMA
     Dosage: DATE LAST CYCLE OF VINCRISTINESTARTED PRIOR TO SAE: 04/JAN/2018
     Route: 042
     Dates: start: 20171229
  5. RITUXIMAB. [Suspect]
     Active Substance: RITUXIMAB
     Indication: B-CELL LYMPHOMA
     Dosage: DATE LAST RITUXIMAB GIVEN PRIOR TO SAE: 03/JAN/2018
     Route: 042
     Dates: start: 20171216
  6. PREDNISONE. [Suspect]
     Active Substance: PREDNISONE
     Indication: B-CELL LYMPHOMA
     Dosage: DATE LAST CYCLE OF PREDNISONE STARTED PRIOR TO SAE: 04/JAN/2018
     Route: 065
  7. PEGFILGRASTIM [Suspect]
     Active Substance: PEGFILGRASTIM
     Indication: B-CELL LYMPHOMA
     Route: 058
     Dates: start: 20171224

REACTIONS (2)
  - General physical health deterioration [Not Recovered/Not Resolved]
  - Nausea [Recovered/Resolved]

NARRATIVE: CASE EVENT DATE: 20180108
